FAERS Safety Report 5442335-X (Version None)
Quarter: 2007Q3

REPORT INFORMATION
  Report Type: 
  Country: None (occurrence: None)
  Receive Date: 20070904
  Receipt Date: 20070823
  Transmission Date: 20080115
  Serious: Yes (Other)
  Sender: FDA-Public Use
  Company Number: US-PFIZER INC-2007071574

PATIENT
  Sex: Female
  Weight: 45.909 kg

DRUGS (7)
  1. CHANTIX [Suspect]
     Indication: SMOKING CESSATION THERAPY
     Route: 048
     Dates: start: 20070601, end: 20070601
  2. XANAX [Concomitant]
  3. VALIUM [Concomitant]
  4. VERAPAMIL [Concomitant]
  5. LANTUS [Concomitant]
  6. HUMALOG [Concomitant]
  7. GLUCOPHAGE [Concomitant]

REACTIONS (2)
  - BLINDNESS UNILATERAL [None]
  - INTRAOCULAR PRESSURE INCREASED [None]
